FAERS Safety Report 5466234-2 (Version None)
Quarter: 2007Q3

REPORT INFORMATION
  Report Type: 
  Country: None (occurrence: None)
  Receive Date: 20070919
  Receipt Date: 20070905
  Transmission Date: 20080115
  Serious: Yes (Hospitalization, Disabling)
  Sender: FDA-Public Use
  Company Number: DSJ-2007-04515

PATIENT
  Age: 77 Year
  Weight: 72 kg

DRUGS (2)
  1. OLMESARTAN MEDOXOMIL [Suspect]
     Indication: HYPERTENSION
     Dosage: 20 MG (20 MG, 1 IN 1 D), PER ORAL
     Route: 048
     Dates: start: 20061220, end: 20070303
  2. NORVASC [Concomitant]

REACTIONS (2)
  - HEPATITIS ACUTE [None]
  - INFLUENZA SEROLOGY POSITIVE [None]
